FAERS Safety Report 9685672 (Version 1)
Quarter: 2013Q4

REPORT INFORMATION
  Report Type: Spontaneous
  Country: US (occurrence: US)
  Receive Date: 20131113
  Receipt Date: 20131113
  Transmission Date: 20140711
  Serious: No
  Sender: FDA-Public Use
  Company Number: US-PFIZER INC-2013320540

PATIENT
  Age: 56 Year
  Sex: Female
  Weight: 59.86 kg

DRUGS (4)
  1. ADVIL PM [Suspect]
     Indication: SLEEP DISORDER
     Dosage: UNK
     Dates: start: 201310, end: 201311
  2. TYLENOL PM [Suspect]
     Indication: SLEEP DISORDER
     Dosage: UNK
  3. ADVIL [Concomitant]
     Indication: MUSCLE DISORDER
     Dosage: UNK
  4. ADVIL [Concomitant]
     Indication: HEADACHE

REACTIONS (3)
  - Drug ineffective [Unknown]
  - Musculoskeletal discomfort [Unknown]
  - Limb discomfort [Unknown]
